FAERS Safety Report 13035614 (Version 2)
Quarter: 2017Q1

REPORT INFORMATION
  Report Type: Spontaneous
  Country: JP (occurrence: JP)
  Receive Date: 20161216
  Receipt Date: 20170202
  Transmission Date: 20170428
  Serious: Yes (Life-Threatening, Hospitalization, Other)
  Sender: FDA-Public Use
  Company Number: JP-PFIZER INC-2016529527

PATIENT
  Age: 72 Year
  Sex: Female

DRUGS (1)
  1. SUTENT [Suspect]
     Active Substance: SUNITINIB MALATE
     Indication: RENAL CANCER METASTATIC
     Dosage: 37.5 MG, 1X/DAY (3 CAPSULES)
     Route: 048
     Dates: start: 20160913, end: 20160925

REACTIONS (5)
  - Tumour lysis syndrome [Recovered/Resolved]
  - Multiple organ dysfunction syndrome [Unknown]
  - Hyperthermia [Recovered/Resolved]
  - Disseminated intravascular coagulation [Unknown]
  - Malaise [Recovered/Resolved]

NARRATIVE: CASE EVENT DATE: 20160925
